FAERS Safety Report 24564785 (Version 3)
Quarter: 2024Q4

REPORT INFORMATION
  Report Type: Spontaneous
  Country: JP (occurrence: JP)
  Receive Date: 20241030
  Receipt Date: 20241122
  Transmission Date: 20250115
  Serious: Yes (Hospitalization, Other)
  Sender: UNITED THERAPEUTICS
  Company Number: JP-UNITED THERAPEUTICS-UNT-2024-034317

PATIENT
  Age: 73 Year
  Sex: Male
  Weight: 57.1 kg

DRUGS (43)
  1. TYVASO [Suspect]
     Active Substance: TREPROSTINIL
     Indication: Pulmonary hypertension
     Dosage: 18 ?G, QID
     Dates: start: 20210819, end: 20210822
  2. TYVASO [Suspect]
     Active Substance: TREPROSTINIL
     Dosage: 18 ?G, QD
     Dates: start: 20210823, end: 20210823
  3. TYVASO [Suspect]
     Active Substance: TREPROSTINIL
     Dosage: 24 ?G, TID
     Dates: start: 20210823, end: 20210823
  4. TYVASO [Suspect]
     Active Substance: TREPROSTINIL
     Dosage: 24 ?G, QID
     Dates: start: 20210824, end: 20210825
  5. TYVASO [Suspect]
     Active Substance: TREPROSTINIL
     Dosage: 24 ?G, QD
     Dates: start: 20210826, end: 20210826
  6. TYVASO [Suspect]
     Active Substance: TREPROSTINIL
     Dosage: 30 ?G, TID
     Dates: start: 20210826, end: 20210826
  7. TYVASO [Suspect]
     Active Substance: TREPROSTINIL
     Dosage: 30 ?G, QID
     Dates: start: 20210827, end: 20210829
  8. TYVASO [Suspect]
     Active Substance: TREPROSTINIL
     Dosage: 30 ?G, QD
     Dates: start: 20210830, end: 20210830
  9. TYVASO [Suspect]
     Active Substance: TREPROSTINIL
     Dosage: 36 ?G, TID
     Dates: start: 20210830, end: 20210830
  10. TYVASO [Suspect]
     Active Substance: TREPROSTINIL
     Dosage: 36 ?G, QID
     Dates: start: 20210831, end: 20210913
  11. TYVASO [Suspect]
     Active Substance: TREPROSTINIL
     Dosage: 36 ?G, BID
     Dates: start: 20210914, end: 20210914
  12. TYVASO [Suspect]
     Active Substance: TREPROSTINIL
     Dosage: 42 ?G, BID
     Dates: start: 20210914, end: 20210914
  13. TYVASO [Suspect]
     Active Substance: TREPROSTINIL
     Dosage: 42 ?G, QID
     Dates: start: 20210915, end: 20210927
  14. TYVASO [Suspect]
     Active Substance: TREPROSTINIL
     Dosage: 42 ?G, BID
     Dates: start: 20210928, end: 20210928
  15. TYVASO [Suspect]
     Active Substance: TREPROSTINIL
     Dosage: 48 ?G, BID
     Dates: start: 20210928, end: 20210928
  16. TYVASO [Suspect]
     Active Substance: TREPROSTINIL
     Dosage: 48 ?G, QID
     Dates: start: 20210929, end: 20211011
  17. TYVASO [Suspect]
     Active Substance: TREPROSTINIL
     Dosage: 48 ?G, TID
     Dates: start: 20211012, end: 20211012
  18. TYVASO [Suspect]
     Active Substance: TREPROSTINIL
     Dosage: 54 ?G, QD
     Dates: start: 20211012, end: 20211012
  19. TYVASO [Suspect]
     Active Substance: TREPROSTINIL
     Dosage: 54 ?G, QID
     Dates: start: 20211013, end: 20211025
  20. TYVASO [Suspect]
     Active Substance: TREPROSTINIL
     Dosage: 54 ?G, BID
     Dates: start: 20211026, end: 20211026
  21. TYVASO [Suspect]
     Active Substance: TREPROSTINIL
     Dosage: 60 ?G, BID
     Dates: start: 20211026, end: 20211026
  22. TYVASO [Suspect]
     Active Substance: TREPROSTINIL
     Dosage: 60 ?G, QID
     Dates: start: 20211027, end: 20220428
  23. TYVASO [Suspect]
     Active Substance: TREPROSTINIL
     Dosage: 60 ?G, TID
     Dates: start: 20220429, end: 20220429
  24. TYVASO [Suspect]
     Active Substance: TREPROSTINIL
     Dosage: 60 ?G, QID
     Dates: start: 20220430, end: 20230410
  25. TYVASO [Suspect]
     Active Substance: TREPROSTINIL
     Dosage: 60 ?G, TID
     Dates: start: 20230411, end: 20230411
  26. TYVASO [Suspect]
     Active Substance: TREPROSTINIL
     Dosage: 60 ?G, QID
     Dates: start: 20230412, end: 20230815
  27. TYVASO [Suspect]
     Active Substance: TREPROSTINIL
     Dosage: 60 ?G, TID
     Dates: start: 20230816, end: 20230816
  28. TYVASO [Suspect]
     Active Substance: TREPROSTINIL
     Dosage: 60 ?G, QID
     Dates: start: 20230817
  29. AZOSEMIDE [Concomitant]
     Active Substance: AZOSEMIDE
     Indication: Pulmonary hypertension
     Dosage: UNK
  30. REVATIO [Concomitant]
     Active Substance: SILDENAFIL CITRATE
     Indication: Pulmonary hypertension
     Dosage: UNK
  31. EPLERENONE [Concomitant]
     Active Substance: EPLERENONE
     Indication: Hypertension
     Dosage: UNK
  32. LANSOPRAZOLE [Concomitant]
     Active Substance: LANSOPRAZOLE
     Indication: Prophylaxis against gastrointestinal ulcer
     Dosage: UNK
     Dates: start: 20211215, end: 20211216
  33. LANSOPRAZOLE [Concomitant]
     Active Substance: LANSOPRAZOLE
     Dosage: UNK
  34. PRASUGREL HYDROCHLORIDE [Concomitant]
     Active Substance: PRASUGREL HYDROCHLORIDE
     Indication: Thrombosis prophylaxis
     Dosage: UNK
     Dates: start: 20220101, end: 20220218
  35. PRASUGREL HYDROCHLORIDE [Concomitant]
     Active Substance: PRASUGREL HYDROCHLORIDE
     Dosage: UNK
  36. FEBUXOSTAT [Concomitant]
     Active Substance: FEBUXOSTAT
     Indication: Hyperuricaemia
     Dosage: UNK
     Dates: start: 20220112, end: 20221220
  37. FEBUXOSTAT [Concomitant]
     Active Substance: FEBUXOSTAT
     Dosage: UNK
  38. Tapros [Concomitant]
     Indication: Ocular hypertension
     Dosage: UNK
  39. EZETIMIBE [Concomitant]
     Active Substance: EZETIMIBE
     Indication: Dyslipidaemia
     Dosage: UNK
  40. ATORVASTATIN [Concomitant]
     Active Substance: ATORVASTATIN
     Indication: Dyslipidaemia
     Dosage: UNK
     Dates: start: 20211213, end: 20220107
  41. ATORVASTATIN [Concomitant]
     Active Substance: ATORVASTATIN
     Dosage: UNK
  42. ESAXERENONE [Concomitant]
     Active Substance: ESAXERENONE
     Indication: Hypertension
     Dosage: UNK
  43. PITAVASTATIN CALCIUM [Concomitant]
     Active Substance: PITAVASTATIN CALCIUM
     Indication: Dyslipidaemia
     Dosage: UNK

REACTIONS (4)
  - Acute myocardial infarction [Recovered/Resolved]
  - Respiratory symptom [Unknown]
  - Cardiac failure [Not Recovered/Not Resolved]
  - Ocular hypertension [Recovered/Resolved]

NARRATIVE: CASE EVENT DATE: 20211108
